FAERS Safety Report 5581036-4 (Version None)
Quarter: 2007Q4

REPORT INFORMATION
  Report Type: 
  Country: None (occurrence: None)
  Receive Date: 20071130
  Receipt Date: 20070709
  Transmission Date: 20080405
  Serious: No
  Sender: FDA-Public Use
  Company Number: US200707002626

PATIENT
  Age: 59 Year
  Sex: Male

DRUGS (6)
  1. BYETTA [Suspect]
     Indication: TYPE 2 DIABETES MELLITUS
     Dosage: 5 UG, 2/D, SUBCUTANEOUS ; 10 UG, 2/D, SUBCUTANEOUS
     Route: 058
     Dates: start: 20070101, end: 20070701
  2. BYETTA [Suspect]
     Indication: TYPE 2 DIABETES MELLITUS
     Dosage: 5 UG, 2/D, SUBCUTANEOUS ; 10 UG, 2/D, SUBCUTANEOUS
     Route: 058
     Dates: start: 20070701
  3. GLYBURIDE [Concomitant]
  4. METFORMIN HCL [Concomitant]
  5. XANAX [Concomitant]
  6. LORAZEPAM [Concomitant]

REACTIONS (3)
  - ANXIETY DISORDER [None]
  - FEELING JITTERY [None]
  - PANIC ATTACK [None]
